FAERS Safety Report 5507514-1 (Version None)
Quarter: 2007Q4

REPORT INFORMATION
  Report Type: 
  Country: None (occurrence: None)
  Receive Date: 20071105
  Receipt Date: 20071105
  Transmission Date: 20080405
  Serious: Yes (Disabling)
  Sender: FDA-Public Use
  Company Number: None

PATIENT
  Sex: Female
  Weight: 61.2356 kg

DRUGS (1)
  1. FOSAMAX [Suspect]
     Indication: OSTEOPOROSIS
     Dosage: 10 MG. DAILY PO
     Route: 048
     Dates: start: 20070315, end: 20071026

REACTIONS (3)
  - BLOOD TEST ABNORMAL [None]
  - OSTEOARTHRITIS [None]
  - PAIN IN EXTREMITY [None]
